FAERS Safety Report 9779719 (Version 1)
Quarter: 2013Q4

REPORT INFORMATION
  Report Type: Spontaneous
  Country: US (occurrence: US)
  Receive Date: 20131223
  Receipt Date: 20131223
  Transmission Date: 20140711
  Serious: Yes (Death)
  Sender: FDA-Public Use
  Company Number: US-MYLANLABS-2013S1027899

PATIENT
  Age: 88 Year
  Sex: Female

DRUGS (6)
  1. AMIODARONE [Suspect]
     Dosage: 150MG LOADING DOSE, THEN 360MG
     Route: 041
  2. AMIODARONE [Suspect]
     Dosage: 360MG INFUSED AT 1 MG/MIN OVER 6H, THEN 0.5 MG/MIN
     Route: 041
  3. AMIODARONE [Suspect]
     Dosage: 0.5 MG/MIN
     Route: 041
  4. SERTRALINE [Concomitant]
     Dosage: 25MG DAILY
     Route: 065
  5. LEVOTHYROXINE SODIUM [Concomitant]
     Dosage: 25MG DAILY
     Route: 065
  6. LISINOPRIL [Concomitant]
     Dosage: 20MG DAILY
     Route: 065

REACTIONS (4)
  - Drug-induced liver injury [Recovered/Resolved]
  - Left ventricular failure [Fatal]
  - Respiratory failure [Not Recovered/Not Resolved]
  - Renal failure [Unknown]
